FAERS Safety Report 22221419 (Version 1)
Quarter: 2023Q2

REPORT INFORMATION
  Report Type: Spontaneous
  Country: FR (occurrence: FR)
  Receive Date: 20230418
  Receipt Date: 20230418
  Transmission Date: 20230722
  Serious: Yes (Hospitalization)
  Sender: FDA-Public Use
  Company Number: None

PATIENT
  Age: 75 Year
  Sex: Female
  Weight: 80 kg

DRUGS (6)
  1. METFORMIN HYDROCHLORIDE [Suspect]
     Active Substance: METFORMIN HYDROCHLORIDE
     Indication: Type 2 diabetes mellitus
     Dosage: 2550 MILLIGRAM DAILY;
     Route: 065
  2. MOXONIDINE [Suspect]
     Active Substance: MOXONIDINE
     Indication: Hypertension
     Dosage: 1 DOSAGE FORMS DAILY; LONG-TERM TREATMENT
  3. DIGOXIN [Suspect]
     Active Substance: DIGOXIN
     Indication: Cardiac failure
     Dosage: 1 DOSAGE FORMS DAILY; 1X/D LONG-TERM
  4. CORDARONE [Suspect]
     Active Substance: AMIODARONE HYDROCHLORIDE
     Indication: Product used for unknown indication
     Dosage: LONG-TERM TREATMENT
  5. COVERAM [Suspect]
     Active Substance: AMLODIPINE\PERINDOPRIL
     Indication: Hypertension
     Dosage: 1 DOSAGE FORMS DAILY; LONG-TERM TREATMENT - 1X/D, 10 MG/10 MG,
  6. BISOPROLOL FUMARATE [Suspect]
     Active Substance: BISOPROLOL FUMARATE
     Indication: Cardiac failure
     Dosage: 10 MILLIGRAM DAILY; LONG-TERM TREATMENT

REACTIONS (5)
  - Sinus bradycardia [Recovered/Resolved]
  - Acute kidney injury [Recovered/Resolved]
  - Metabolic acidosis [Recovered/Resolved]
  - Hyperkalaemia [Recovered/Resolved]
  - Overdose [Recovered/Resolved]

NARRATIVE: CASE EVENT DATE: 20221005
